FAERS Safety Report 11105634 (Version 1)
Quarter: 2015Q2

REPORT INFORMATION
  Report Type: Spontaneous
  Country: US (occurrence: None)
  Receive Date: 20150511
  Receipt Date: 20150511
  Transmission Date: 20150821
  Serious: No
  Sender: FDA-Public Use
  Company Number: None

PATIENT
  Age: 30 Year
  Sex: Female

DRUGS (1)
  1. PHENYTOIN (DILANTIN) ER [Suspect]
     Active Substance: PHENYTOIN
     Indication: SEIZURE
     Dates: start: 20140125, end: 20140222

REACTIONS (8)
  - Drug reaction with eosinophilia and systemic symptoms [None]
  - Hypogammaglobulinaemia [None]
  - Seizure [None]
  - Human herpes virus 6 serology positive [None]
  - Erythema multiforme [None]
  - Trichomoniasis [None]
  - Disease recurrence [None]
  - Drug-induced liver injury [None]

NARRATIVE: CASE EVENT DATE: 20140222
